FAERS Safety Report 5958021-3 (Version None)
Quarter: 2008Q4

REPORT INFORMATION
  Report Type: 
  Country: None (occurrence: None)
  Receive Date: 20081119
  Receipt Date: 20081111
  Transmission Date: 20090506
  Serious: Yes (Hospitalization)
  Sender: FDA-Public Use
  Company Number: PHBS2008CN06303

PATIENT
  Age: 50 Year
  Sex: Female

DRUGS (13)
  1. CYCLOSPORINE [Suspect]
     Indication: RENAL TRANSPLANT
     Dosage: 8 MG/KG/DAY
     Route: 048
  2. CYCLOSPORINE [Interacting]
     Dosage: 5-7 MG/KG/DAY
     Route: 048
  3. CYCLOSPORINE [Interacting]
     Dosage: 4-6 MG/KG/DAY
     Route: 048
  4. CYCLOSPORINE [Interacting]
     Dosage: 3-5 MG/KG/DAY
     Route: 048
  5. CYCLOSPORINE [Interacting]
     Dosage: 75 MG, BID
     Route: 048
  6. CYCLOSPORINE [Interacting]
     Dosage: 125 MG/DAY
     Route: 048
  7. BERBAMINE HYDROCHLORIDE [Interacting]
     Indication: DIARRHOEA
     Dosage: 0.2 G, BID
  8. PREDNISONE [Concomitant]
     Indication: RENAL TRANSPLANT
     Dosage: 0.5 G, UNK
     Route: 041
  9. PREDNISONE [Concomitant]
     Dosage: 80 MG/DAY
     Route: 048
  10. PREDNISONE [Concomitant]
     Dosage: 15 MG/DAY
     Route: 048
  11. AZATHIOPRINE [Concomitant]
     Indication: RENAL TRANSPLANT
     Dosage: 200 MG/DAY
     Route: 048
  12. AZATHIOPRINE [Concomitant]
     Dosage: 100 MG/DAY
     Route: 048
  13. AZATHIOPRINE [Concomitant]
     Dosage: 50 MG/DAY
     Route: 048

REACTIONS (7)
  - BLOOD CREATININE INCREASED [None]
  - BLOOD UREA INCREASED [None]
  - DIARRHOEA [None]
  - DIZZINESS [None]
  - DRUG INTERACTION [None]
  - FATIGUE [None]
  - IMMUNOSUPPRESSANT DRUG LEVEL INCREASED [None]
